FAERS Safety Report 9155743 (Version 1)
Quarter: 2013Q1

REPORT INFORMATION
  Report Type: Spontaneous
  Country: US (occurrence: US)
  Receive Date: 20130311
  Receipt Date: 20130311
  Transmission Date: 20140127
  Serious: No
  Sender: FDA-Public Use
  Company Number: US-ASTRAZENECA-2013SE12898

PATIENT
  Age: 77 Year
  Sex: Female
  Weight: 68 kg

DRUGS (10)
  1. LISINOPRIL [Suspect]
     Indication: HYPERTENSION
     Route: 048
  2. METOPROLOL SUCCINATE [Suspect]
     Indication: HYPERTENSION
     Route: 048
     Dates: start: 201301
  3. DILTIAZEM [Suspect]
     Indication: HYPERTENSION
     Route: 065
  4. DILTIAZEM [Suspect]
     Indication: HYPERTENSION
     Route: 065
  5. LIPITOR [Suspect]
     Indication: BLOOD CHOLESTEROL INCREASED
     Route: 065
  6. LYRICA [Suspect]
     Indication: NEUROPATHY PERIPHERAL
     Route: 065
     Dates: start: 2012, end: 201211
  7. LYRICA [Suspect]
     Indication: NEUROPATHY PERIPHERAL
     Route: 065
  8. GLUCOSAMINE [Concomitant]
     Indication: SPINAL OSTEOARTHRITIS
  9. MULTIVITAMINS [Concomitant]
  10. LEVOFLOXACIN [Concomitant]

REACTIONS (10)
  - Local swelling [Unknown]
  - Cystitis [Recovered/Resolved]
  - Urinary tract infection [Unknown]
  - Hypertension [Unknown]
  - Pain in extremity [Unknown]
  - Blood sodium decreased [Unknown]
  - Pruritus [Unknown]
  - Arthralgia [Unknown]
  - Sleep disorder [Unknown]
  - Drug ineffective [Unknown]
